FAERS Safety Report 9721983 (Version 1)
Quarter: 2013Q4

REPORT INFORMATION
  Report Type: Spontaneous
  Country: US (occurrence: US)
  Receive Date: 20131202
  Receipt Date: 20131202
  Transmission Date: 20140711
  Serious: Yes (Death, Other)
  Sender: FDA-Public Use
  Company Number: US-BRISTOL-MYERS SQUIBB COMPANY-19849116

PATIENT
  Age: 35 Year
  Sex: Female

DRUGS (1)
  1. YERVOY [Suspect]
     Indication: METASTATIC MALIGNANT MELANOMA
     Dosage: NO OF DOSES 2 ON 22OCT,12NOV13
     Dates: start: 20131022, end: 20131112

REACTIONS (2)
  - Death [Fatal]
  - Malignant neoplasm progression [Unknown]
